FAERS Safety Report 22009769 (Version 1)
Quarter: 2023Q1

REPORT INFORMATION
  Report Type: Spontaneous
  Country: DE (occurrence: DE)
  Receive Date: 20230220
  Receipt Date: 20230220
  Transmission Date: 20230418
  Serious: Yes (Hospitalization)
  Sender: FDA-Public Use
  Company Number: DE-JNJFOC-20230207588

PATIENT
  Age: 8 Decade
  Sex: Female

DRUGS (3)
  1. BORTEZOMIB [Suspect]
     Active Substance: BORTEZOMIB
     Indication: Plasma cell myeloma
     Dosage: 2.52 MG (DATE OF THE LAST DOSAGE BEFORE EVENT ONSET WAS ON 26 MAY 2022)
     Route: 065
     Dates: start: 20220425, end: 20220601
  2. DEXAMETHASONE [Suspect]
     Active Substance: DEXAMETHASONE
     Indication: Plasma cell myeloma
     Dosage: 20 MG (DATE OF THE LAST DOSAGE BEFORE EVENT ONSET WAS ON 26 MAY 2022)
     Route: 065
     Dates: start: 20220425, end: 20220601
  3. DARATUMUMAB [Suspect]
     Active Substance: DARATUMUMAB
     Indication: Plasma cell myeloma
     Dosage: UNK (DATE OF THE LAST DOSAGE BEFORE EVENT ONSET WAS 26 MAY 2022)
     Route: 042
     Dates: start: 20220425, end: 20220601

REACTIONS (4)
  - Anaemia [Not Recovered/Not Resolved]
  - Infection [Recovered/Resolved]
  - Thrombocytopenia [Not Recovered/Not Resolved]
  - Dizziness [Recovered/Resolved]

NARRATIVE: CASE EVENT DATE: 20220425
